FAERS Safety Report 19304704 (Version 3)
Quarter: 2021Q2

REPORT INFORMATION
  Report Type: Spontaneous
  Country: FR (occurrence: FR)
  Receive Date: 20210526
  Receipt Date: 20210617
  Transmission Date: 20210717
  Serious: Yes (Other)
  Sender: FDA-Public Use
  Company Number: FR-SUN PHARMACEUTICAL INDUSTRIES LTD-2021RR-298180

PATIENT
  Age: 56 Year
  Sex: Male

DRUGS (6)
  1. ESOMEPRAZOLE. [Suspect]
     Active Substance: ESOMEPRAZOLE MAGNESIUM
     Indication: GASTRINOMA
     Dosage: 80 MILLIGRAM, DAILY
     Route: 065
  2. ESOMEPRAZOLE. [Suspect]
     Active Substance: ESOMEPRAZOLE MAGNESIUM
     Dosage: 120 MILLIGRAM, DAILY
     Route: 065
  3. RANITIDINE. [Suspect]
     Active Substance: RANITIDINE
     Indication: GASTRINOMA
     Dosage: 600 MILLIGRAM, DAILY
     Route: 065
  4. ESOMEPRAZOLE. [Suspect]
     Active Substance: ESOMEPRAZOLE MAGNESIUM
     Dosage: 240 MILLIGRAM, DAILY
     Route: 065
  5. MAGNESIUM [Suspect]
     Active Substance: MAGNESIUM
     Dosage: UNK
     Route: 048
  6. MAGNESIUM [Suspect]
     Active Substance: MAGNESIUM
     Indication: MINERAL SUPPLEMENTATION
     Dosage: UNK
     Route: 042

REACTIONS (8)
  - Hypokalaemia [Unknown]
  - Dehydration [Unknown]
  - Drug ineffective [Unknown]
  - Metabolic alkalosis [Unknown]
  - Hypomagnesaemia [Recovered/Resolved]
  - Cerebellar syndrome [Recovering/Resolving]
  - Therapeutic product effect incomplete [Recovered/Resolved]
  - Renal impairment [Unknown]
